FAERS Safety Report 15956444 (Version 3)
Quarter: 2019Q3

REPORT INFORMATION
  Report Type: Report from Study
  Country: US (occurrence: US)
  Receive Date: 20190213
  Receipt Date: 20190910
  Transmission Date: 20191004
  Serious: Yes (Hospitalization, Other)
  Sender: FDA-Public Use
  Company Number: US-SA-2019SA036389

PATIENT
  Age: 56 Year
  Sex: Female

DRUGS (3)
  1. INSULIN GLARGINE [Suspect]
     Active Substance: INSULIN GLARGINE
     Indication: TYPE 2 DIABETES MELLITUS
     Dosage: 75 U, QD
     Route: 058
  2. INSULIN GLARGINE [Suspect]
     Active Substance: INSULIN GLARGINE
     Dosage: 76 U, QD
     Route: 058
  3. INSULIN GLARGINE [Suspect]
     Active Substance: INSULIN GLARGINE
     Dosage: 80 U, QD
     Dates: start: 201903

REACTIONS (14)
  - Fall [Unknown]
  - Memory impairment [Not Recovered/Not Resolved]
  - Tremor [Not Recovered/Not Resolved]
  - Frustration tolerance decreased [Not Recovered/Not Resolved]
  - Blood iron decreased [Unknown]
  - Decreased appetite [Unknown]
  - Product dose omission [Not Recovered/Not Resolved]
  - Blood glucose decreased [Unknown]
  - Intentional product misuse [Unknown]
  - Gait disturbance [Recovered/Resolved]
  - Hospitalisation [Unknown]
  - Chest discomfort [Recovered/Resolved]
  - Balance disorder [Not Recovered/Not Resolved]
  - Intentional dose omission [Unknown]

NARRATIVE: CASE EVENT DATE: 201811
